FAERS Safety Report 24165200 (Version 1)
Quarter: 2024Q3

REPORT INFORMATION
  Report Type: Spontaneous
  Country: IT (occurrence: IT)
  Receive Date: 20240802
  Receipt Date: 20240802
  Transmission Date: 20241016
  Serious: Yes (Other)
  Sender: NOVITIUM PHARMA
  Company Number: IT-NOVITIUMPHARMA-2024ITNVP01437

PATIENT
  Age: 15 Year
  Sex: Male

DRUGS (14)
  1. DEXAMETHASONE [Suspect]
     Active Substance: DEXAMETHASONE
     Indication: Hodgkin^s disease
  2. PREDNISONE [Suspect]
     Active Substance: PREDNISONE
     Indication: Hodgkin^s disease
     Route: 042
  3. PREDNISONE [Suspect]
     Active Substance: PREDNISONE
     Route: 048
  4. VINCRISTINE [Concomitant]
     Active Substance: VINCRISTINE
     Indication: Hodgkin^s disease
     Route: 042
  5. VINCRISTINE [Concomitant]
     Active Substance: VINCRISTINE
     Dosage: CAPPING DOSE 2 MG
     Route: 042
  6. ETOPOSIDE [Concomitant]
     Active Substance: ETOPOSIDE
     Indication: Hodgkin^s disease
  7. ETOPOSIDE [Concomitant]
     Active Substance: ETOPOSIDE
  8. DOXORUBICIN [Concomitant]
     Active Substance: DOXORUBICIN
     Indication: Hodgkin^s disease
     Route: 042
  9. DOXORUBICIN [Concomitant]
     Active Substance: DOXORUBICIN
  10. CYCLOPHOSPHAMIDE [Concomitant]
     Active Substance: CYCLOPHOSPHAMIDE
     Indication: Hodgkin^s disease
     Route: 042
  11. DACARBAZINE [Concomitant]
     Active Substance: DACARBAZINE
     Indication: Hodgkin^s disease
     Route: 042
  12. BRENTUXIMAB VEDOTIN [Concomitant]
     Active Substance: BRENTUXIMAB VEDOTIN
     Indication: Hodgkin^s disease
     Route: 042
  13. CISPLATIN [Concomitant]
     Active Substance: CISPLATIN
     Indication: Hodgkin^s disease
     Route: 042
  14. CYTARABINE [Concomitant]
     Active Substance: CYTARABINE
     Indication: Hodgkin^s disease

REACTIONS (5)
  - Leukopenia [Recovering/Resolving]
  - Hepatotoxicity [Recovering/Resolving]
  - Thrombocytopenia [Recovering/Resolving]
  - Anaemia [Recovering/Resolving]
  - Drug ineffective [Unknown]
